FAERS Safety Report 25829656 (Version 2)
Quarter: 2025Q4

REPORT INFORMATION
  Report Type: Report from Study
  Country: US (occurrence: None)
  Receive Date: 20250922
  Receipt Date: 20251018
  Transmission Date: 20260117
  Serious: Yes (Other)
  Sender: UCB
  Company Number: US-UCBSA-2025058633

PATIENT
  Age: 22 Year
  Weight: 142 kg

DRUGS (2)
  1. FENFLURAMINE HYDROCHLORIDE [Suspect]
     Active Substance: FENFLURAMINE HYDROCHLORIDE
     Indication: Lennox-Gastaut syndrome
     Dosage: 5 MILLILITER, 2X/DAY (BID)
  2. FENFLURAMINE HYDROCHLORIDE [Suspect]
     Active Substance: FENFLURAMINE HYDROCHLORIDE
     Dosage: 2.2 MILLIGRAM PER DAY

REACTIONS (3)
  - Mitral valve incompetence [Not Recovered/Not Resolved]
  - Cardiac steatosis [Not Recovered/Not Resolved]
  - Eustachian valve hypertrophy [Not Recovered/Not Resolved]
